FAERS Safety Report 7892056-9 (Version None)
Quarter: 2011Q4

REPORT INFORMATION
  Report Type: 
  Country: None (occurrence: None)
  Receive Date: 20111103
  Receipt Date: 20110814
  Transmission Date: 20120403
  Serious: No
  Sender: FDA-Public Use
  Company Number: US-AMGEN-USASP2011041492

PATIENT
  Age: 52 Year
  Sex: Female

DRUGS (3)
  1. ENBREL [Suspect]
     Indication: RAYNAUD'S PHENOMENON
  2. ENBREL [Suspect]
     Indication: RHEUMATOID ARTHRITIS
     Dosage: 50 MG, QWK
     Dates: start: 20040201
  3. ENBREL [Suspect]
     Indication: SCLERODERMA

REACTIONS (15)
  - ARTHRITIS [None]
  - HERPES ZOSTER [None]
  - INJECTION SITE PRURITUS [None]
  - BONE DECALCIFICATION [None]
  - LIMB DISCOMFORT [None]
  - LOCALISED INFECTION [None]
  - OEDEMA PERIPHERAL [None]
  - WEIGHT INCREASED [None]
  - CONCUSSION [None]
  - INJECTION SITE SWELLING [None]
  - GRIP STRENGTH DECREASED [None]
  - PAIN IN EXTREMITY [None]
  - INJECTION SITE ERYTHEMA [None]
  - SCLERODERMA [None]
  - FALL [None]
